FAERS Safety Report 6562911-0 (Version None)
Quarter: 2010Q1

REPORT INFORMATION
  Report Type: 
  Country: None (occurrence: None)
  Receive Date: 20100130
  Receipt Date: 20091126
  Transmission Date: 20100710
  Serious: No
  Sender: FDA-Public Use
  Company Number: US-ABBOTT-09P-163-0610996-00

PATIENT
  Sex: Male
  Weight: 124.85 kg

DRUGS (3)
  1. HUMIRA [Suspect]
     Indication: RHEUMATOID ARTHRITIS
     Dates: start: 20090601
  2. HUMIRA [Suspect]
     Indication: PSORIATIC ARTHROPATHY
     Dosage: DAY 1 INDUCTION DOSE
     Dates: start: 20091126
  3. HUMIRA [Suspect]
     Indication: PSORIASIS

REACTIONS (1)
  - FATIGUE [None]
